FAERS Safety Report 13182036 (Version 1)
Quarter: 2017Q1

REPORT INFORMATION
  Report Type: Spontaneous
  Country: US (occurrence: US)
  Receive Date: 20170202
  Receipt Date: 20170202
  Transmission Date: 20170428
  Serious: Yes (Other)
  Sender: FDA-Public Use
  Company Number: None

PATIENT
  Age: 36 Year
  Sex: Female
  Weight: 49.5 kg

DRUGS (4)
  1. GABAPENTIN. [Concomitant]
     Active Substance: GABAPENTIN
  2. EPCLUSA [Suspect]
     Active Substance: SOFOSBUVIR\VELPATASVIR
     Indication: HEPATITIS C
     Dosage: ?          QUANTITY:1 TABLET(S);?
     Route: 048
     Dates: start: 20161017, end: 20170110
  3. NOVOLIN R [Concomitant]
     Active Substance: INSULIN HUMAN
  4. HUMULIN N [Concomitant]
     Active Substance: INSULIN HUMAN

REACTIONS (6)
  - Drug ineffective [None]
  - Diabetic neuropathy [None]
  - Insomnia [None]
  - Depression [None]
  - Pain in extremity [None]
  - Burning sensation [None]

NARRATIVE: CASE EVENT DATE: 20161101
